FAERS Safety Report 21800967 (Version 5)
Quarter: 2023Q1

REPORT INFORMATION
  Report Type: Report from Study
  Country: US (occurrence: US)
  Receive Date: 20221230
  Receipt Date: 20230329
  Transmission Date: 20230417
  Serious: Yes (Other)
  Sender: FDA-Public Use
  Company Number: US-ABBVIE-4221057

PATIENT
  Age: 41 Year
  Sex: Female

DRUGS (2)
  1. HUMIRA [Suspect]
     Active Substance: ADALIMUMAB
     Indication: Rheumatoid arthritis
     Dosage: CITRATE FREE
     Route: 058
  2. HUMIRA [Suspect]
     Active Substance: ADALIMUMAB
     Dosage: CITRATE FREE
     Route: 058
     Dates: start: 20211001

REACTIONS (17)
  - Carpal tunnel syndrome [Not Recovered/Not Resolved]
  - Pain [Not Recovered/Not Resolved]
  - Musculoskeletal stiffness [Not Recovered/Not Resolved]
  - Fatigue [Not Recovered/Not Resolved]
  - Periarthritis [Unknown]
  - Anaemia [Unknown]
  - Swelling [Not Recovered/Not Resolved]
  - Dermatitis atopic [Not Recovered/Not Resolved]
  - Skin plaque [Not Recovered/Not Resolved]
  - End stage renal disease [Not Recovered/Not Resolved]
  - Psoriatic arthropathy [Unknown]
  - Haemoglobin decreased [Unknown]
  - Type 1 diabetes mellitus [Not Recovered/Not Resolved]
  - Stress [Unknown]
  - Vitrectomy [Unknown]
  - Bone operation [Unknown]
  - Peripheral nerve operation [Unknown]

NARRATIVE: CASE EVENT DATE: 20221001
